FAERS Safety Report 22091660 (Version 1)
Quarter: 2023Q1

REPORT INFORMATION
  Report Type: Report from Study
  Country: CO (occurrence: CO)
  Receive Date: 20230314
  Receipt Date: 20230314
  Transmission Date: 20230418
  Serious: Yes (Other)
  Sender: FDA-Public Use
  Company Number: CO-BIOGEN-2021BI01077341

PATIENT
  Age: 52 Year
  Sex: Female
  Weight: 55 kg

DRUGS (6)
  1. PLEGRIDY [Suspect]
     Active Substance: PEGINTERFERON BETA-1A
     Indication: Multiple sclerosis
     Route: 050
     Dates: start: 201912
  2. PLEGRIDY [Suspect]
     Active Substance: PEGINTERFERON BETA-1A
     Route: 050
     Dates: start: 2020
  3. LYRICA [Suspect]
     Active Substance: PREGABALIN
     Indication: Arthralgia
     Dosage: AS REQUIRED
     Route: 050
     Dates: start: 202003
  4. OMEGA 3 [Concomitant]
     Active Substance: CAPSAICIN
     Indication: Supplementation therapy
     Route: 050
  5. THIAMINE [Concomitant]
     Active Substance: THIAMINE
     Indication: Vitamin supplementation
     Route: 050
     Dates: start: 2022
  6. THYROXINE [Concomitant]
     Active Substance: LEVOTHYROXINE
     Indication: Metabolic abnormality management
     Route: 050
     Dates: start: 2022

REACTIONS (34)
  - Gastritis erosive [Not Recovered/Not Resolved]
  - Emotional distress [Not Recovered/Not Resolved]
  - Muscle spasms [Not Recovered/Not Resolved]
  - Neuralgia [Not Recovered/Not Resolved]
  - Paraesthesia [Not Recovered/Not Resolved]
  - Hypoaesthesia [Not Recovered/Not Resolved]
  - Auditory nerve disorder [Not Recovered/Not Resolved]
  - Anxiety [Not Recovered/Not Resolved]
  - Dizziness [Not Recovered/Not Resolved]
  - Muscular weakness [Not Recovered/Not Resolved]
  - Visual impairment [Unknown]
  - Hypertension [Unknown]
  - Otorrhoea [Unknown]
  - Chest discomfort [Recovered/Resolved]
  - Dyspnoea [Recovered/Resolved]
  - Malaise [Recovered/Resolved]
  - Sensory disturbance [Recovered/Resolved]
  - Palpitations [Recovered/Resolved]
  - Weight decreased [Recovered/Resolved]
  - Rash macular [Recovered/Resolved]
  - Skin discolouration [Unknown]
  - Tremor [Not Recovered/Not Resolved]
  - Hepatic cyst [Not Recovered/Not Resolved]
  - Hiatus hernia [Not Recovered/Not Resolved]
  - Gastric disorder [Not Recovered/Not Resolved]
  - Optic nerve injury [Recovered/Resolved]
  - Tachycardia [Recovered/Resolved]
  - Depressed mood [Recovered/Resolved]
  - Tinnitus [Recovered/Resolved]
  - Anxiety [Recovered/Resolved]
  - Pain [Not Recovered/Not Resolved]
  - Arthralgia [Recovered/Resolved]
  - Headache [Recovered/Resolved]
  - Nausea [Recovered/Resolved]

NARRATIVE: CASE EVENT DATE: 20200101
